FAERS Safety Report 8323247-0 (Version None)
Quarter: 2012Q2

REPORT INFORMATION
  Report Type: 
  Country: None (occurrence: None)
  Receive Date: 20120430
  Receipt Date: 20120430
  Transmission Date: 20120825
  Serious: Yes (Hospitalization)
  Sender: FDA-Public Use
  Company Number: CO-ABBOTT-12P-036-0930473-00

PATIENT
  Sex: Female

DRUGS (1)
  1. HUMIRA [Suspect]
     Indication: PSORIASIS
     Route: 058
     Dates: start: 20100126, end: 20120216

REACTIONS (4)
  - URINARY TRACT INFECTION [None]
  - HEPATIC CIRRHOSIS [None]
  - PNEUMONIA VIRAL [None]
  - HEPATIC ENCEPHALOPATHY [None]
